FAERS Safety Report 9934609 (Version 1)
Quarter: 2014Q1

REPORT INFORMATION
  Report Type: Spontaneous
  Country: US (occurrence: US)
  Receive Date: 20140228
  Receipt Date: 20140228
  Transmission Date: 20141002
  Serious: No
  Sender: FDA-Public Use
  Company Number: US-ASTRAZENECA-2013SE85866

PATIENT
  Age: 79 Year
  Sex: Female
  Weight: 72.1 kg

DRUGS (5)
  1. TOPROL-XL [Suspect]
     Indication: BLOOD PRESSURE ABNORMAL
     Route: 048
  2. HYOSCYAMINE [Concomitant]
     Indication: ULCER
     Dosage: NR DAILY
  3. MELOXICAM [Concomitant]
     Indication: GOUT
  4. ENALAPRIL MAL HCTZ [Concomitant]
     Indication: BLOOD PRESSURE ABNORMAL
     Dosage: 10MG/25 DAILY
  5. ALLOPURINOL [Concomitant]

REACTIONS (2)
  - Lip disorder [Unknown]
  - Dysgeusia [Unknown]
